FAERS Safety Report 6134280-1 (Version None)
Quarter: 2009Q1

REPORT INFORMATION
  Report Type: 
  Country: None (occurrence: None)
  Receive Date: 20090325
  Receipt Date: 20090316
  Transmission Date: 20090719
  Serious: Yes (Other)
  Sender: FDA-Public Use
  Company Number: 2009SP006119

PATIENT

DRUGS (2)
  1. CELESTONE [Suspect]
     Indication: FOETAL GROWTH RETARDATION
     Dosage: TRPL
     Route: 064
     Dates: start: 20090224
  2. CELESTONE [Suspect]
     Indication: FOETAL GROWTH RETARDATION
     Dosage: TRPL
     Route: 064
     Dates: start: 20090225

REACTIONS (1)
  - FOETAL CARDIAC DISORDER [None]
